FAERS Safety Report 7668630-1 (Version None)
Quarter: 2011Q3

REPORT INFORMATION
  Report Type: 
  Country: None (occurrence: None)
  Receive Date: 20110808
  Receipt Date: 20110808
  Transmission Date: 20111222
  Serious: Yes (Other)
  Sender: FDA-Public Use
  Company Number: None

PATIENT
  Age: 27 Year
  Sex: Male
  Weight: 88.45 kg

DRUGS (1)
  1. SENOKOT [Suspect]
     Indication: CONSTIPATION
     Dosage: 2 TABLETS
     Route: 048

REACTIONS (10)
  - GAIT DISTURBANCE [None]
  - DIARRHOEA [None]
  - FALL [None]
  - DIZZINESS [None]
  - ASTHENIA [None]
  - SYNCOPE [None]
  - LOSS OF CONSCIOUSNESS [None]
  - CONVULSION [None]
  - ABDOMINAL PAIN UPPER [None]
  - TREMOR [None]
